FAERS Safety Report 9092459 (Version 2)
Quarter: 2013Q1

REPORT INFORMATION
  Report Type: Spontaneous
  Country: DE (occurrence: DE)
  Receive Date: 20130131
  Receipt Date: 20130214
  Transmission Date: 20140127
  Serious: Yes (Hospitalization, Other)
  Sender: FDA-Public Use
  Company Number: DE-BAYER-2013-009312

PATIENT
  Age: 33 Year
  Sex: Female
  Weight: 61 kg

DRUGS (1)
  1. QLAIRA FILMTABLETTEN [Suspect]

REACTIONS (2)
  - Back pain [None]
  - Acute hepatic failure [Not Recovered/Not Resolved]
